FAERS Safety Report 9869002 (Version 2)
Quarter: 2014Q2

REPORT INFORMATION
  Report Type: Spontaneous
  Country: JP (occurrence: JP)
  Receive Date: 20140205
  Receipt Date: 20140407
  Transmission Date: 20141212
  Serious: Yes (Death, Life-Threatening, Other)
  Sender: FDA-Public Use
  Company Number: JP-ROCHE-1342605

PATIENT
  Age: 57 Year
  Sex: Female
  Weight: 54 kg

DRUGS (45)
  1. HERCEPTIN [Suspect]
     Indication: BREAST CANCER
     Dosage: DOSAGE IS UNCERTAIN. ?TWO COURSES
     Route: 041
     Dates: start: 20130704, end: 20130704
  2. HERCEPTIN [Suspect]
     Indication: BREAST CANCER
     Dosage: DOSAGE IS UNCERTAIN. ?TWO COURSES
     Route: 041
     Dates: start: 20131129, end: 20131220
  3. PERJETA [Suspect]
     Indication: BREAST CANCER
     Dosage: TWO COURSES
     Route: 041
     Dates: start: 20131129, end: 20131129
  4. PERJETA [Suspect]
     Indication: BREAST CANCER
     Dosage: TWO COURSES
     Route: 041
     Dates: start: 20131220, end: 20131220
  5. TAXOTERE [Suspect]
     Indication: BREAST CANCER
     Dosage: DOSAGE IS UNCERTAIN. ?TWO COURSES
     Route: 041
     Dates: start: 20131129, end: 20131129
  6. TAXOTERE [Suspect]
     Indication: BREAST CANCER
     Dosage: DOSAGE IS UNCERTAIN. ?TWO COURSES
     Route: 041
     Dates: start: 20131220, end: 20131220
  7. PACLITAXEL [Suspect]
     Indication: BREAST CANCER
     Route: 041
     Dates: start: 20130704, end: 20130718
  8. PACLITAXEL [Suspect]
     Route: 041
     Dates: start: 20130802, end: 20130816
  9. PACLITAXEL [Suspect]
     Route: 041
     Dates: start: 20130830, end: 20130830
  10. PACLITAXEL [Suspect]
     Route: 041
     Dates: start: 20130913, end: 20130913
  11. PACLITAXEL [Suspect]
     Route: 041
     Dates: start: 20131004, end: 20131011
  12. PACLITAXEL [Suspect]
     Route: 041
     Dates: start: 20131101, end: 20131101
  13. PACLITAXEL [Suspect]
     Route: 041
     Dates: start: 20131115, end: 20131115
  14. GASTER D [Concomitant]
     Route: 048
     Dates: start: 20131129, end: 20131225
  15. GASTER D [Concomitant]
     Route: 048
     Dates: start: 20131226, end: 20131226
  16. GASTER D [Concomitant]
     Route: 048
     Dates: start: 20131227, end: 20140108
  17. MUCOSTA [Concomitant]
     Route: 048
     Dates: start: 20131129, end: 20131225
  18. MUCOSTA [Concomitant]
     Route: 048
     Dates: start: 20131226, end: 20131226
  19. MUCOSTA [Concomitant]
     Route: 048
     Dates: start: 20131227, end: 20140108
  20. LASIX [Concomitant]
     Route: 048
     Dates: start: 20131129, end: 20131225
  21. LASIX [Concomitant]
     Route: 048
     Dates: start: 20131226, end: 20131226
  22. LASIX [Concomitant]
     Route: 048
     Dates: start: 20131227, end: 20140108
  23. DUROTEP [Concomitant]
     Route: 062
     Dates: start: 20131129, end: 20131202
  24. DUROTEP [Concomitant]
     Route: 062
     Dates: start: 20131213, end: 20131216
  25. DUROTEP [Concomitant]
     Route: 062
     Dates: start: 20131226, end: 20131229
  26. DUROTEP [Concomitant]
     Route: 062
     Dates: start: 20140108, end: 20140111
  27. PURSENNID [Concomitant]
     Route: 048
     Dates: start: 20131204, end: 20131204
  28. PURSENNID [Concomitant]
     Route: 048
     Dates: start: 20131213, end: 20131213
  29. PURSENNID [Concomitant]
     Route: 048
     Dates: start: 20131217, end: 20131217
  30. PURSENNID [Concomitant]
     Route: 048
     Dates: start: 20131222, end: 20131223
  31. PURSENNID [Concomitant]
     Route: 048
     Dates: start: 20131225, end: 20131225
  32. DECADRON [Concomitant]
     Route: 041
     Dates: start: 20131129, end: 20131129
  33. DECADRON [Concomitant]
     Route: 041
     Dates: start: 20131130, end: 20131203
  34. DECADRON [Concomitant]
     Route: 041
     Dates: start: 20131204, end: 20131213
  35. DECADRON [Concomitant]
     Route: 041
     Dates: start: 20131220, end: 20131220
  36. DECADRON [Concomitant]
     Route: 041
     Dates: start: 20131221, end: 20131231
  37. DECADRON [Concomitant]
     Route: 041
     Dates: start: 20140101, end: 20140109
  38. PRIMPERAN [Concomitant]
     Route: 041
     Dates: start: 20131130, end: 20131210
  39. PRIMPERAN [Concomitant]
     Route: 042
     Dates: start: 20131202, end: 20131202
  40. PRIMPERAN [Concomitant]
     Route: 041
     Dates: start: 20131221, end: 20140109
  41. VITAMEDIN (BENFOTIAMINE/CYANOCOBALAMIN/PYRIDOXINE HYDROCHLORIDE) [Concomitant]
     Route: 041
     Dates: start: 20131130, end: 20131219
  42. VITAMEDIN (BENFOTIAMINE/CYANOCOBALAMIN/PYRIDOXINE HYDROCHLORIDE) [Concomitant]
     Route: 041
     Dates: start: 20131221, end: 20131231
  43. NEOPHAGEN C [Concomitant]
     Route: 042
     Dates: start: 20131130, end: 20131219
  44. NEOPHAGEN C [Concomitant]
     Route: 042
     Dates: start: 20131221, end: 20140116
  45. NOVAMIN (JAPAN) [Concomitant]
     Route: 030
     Dates: start: 20131206, end: 20131206

REACTIONS (4)
  - Breast cancer [Fatal]
  - Hepatic failure [Fatal]
  - Stevens-Johnson syndrome [Not Recovered/Not Resolved]
  - Interstitial lung disease [Unknown]
